FAERS Safety Report 12584297 (Version 1)
Quarter: 2016Q3

REPORT INFORMATION
  Report Type: Spontaneous
  Country: BR (occurrence: BR)
  Receive Date: 20160722
  Receipt Date: 20160722
  Transmission Date: 20161109
  Serious: Yes (Death, Other)
  Sender: FDA-Public Use
  Company Number: BR-PFIZER INC-2016346097

PATIENT
  Age: 86 Year
  Sex: Male

DRUGS (1)
  1. CARDURAN XL [Suspect]
     Active Substance: DOXAZOSIN MESYLATE
     Dosage: UNK

REACTIONS (2)
  - Organ failure [Fatal]
  - Dengue fever [Unknown]

NARRATIVE: CASE EVENT DATE: 201502
